FAERS Safety Report 11652048 (Version 1)
Quarter: 2015Q4

REPORT INFORMATION
  Report Type: Spontaneous
  Country: US (occurrence: US)
  Receive Date: 20151022
  Receipt Date: 20151022
  Transmission Date: 20160304
  Serious: No
  Sender: FDA-Public Use
  Company Number: US-PFIZER INC-2015352468

PATIENT
  Age: 49 Year
  Sex: Female
  Weight: 68 kg

DRUGS (2)
  1. CELECOXIB. [Suspect]
     Active Substance: CELECOXIB
     Indication: SPINAL COLUMN STENOSIS
     Dosage: 200 MG, SOMETIMES ONE A DAY SOMETIMES TWO AS NEEDED
     Dates: start: 201501
  2. PROTONIX [Concomitant]
     Active Substance: PANTOPRAZOLE SODIUM
     Indication: ABDOMINAL DISCOMFORT
     Dosage: 30 MG, 1X/DAY

REACTIONS (2)
  - Drug ineffective [Unknown]
  - Abdominal discomfort [Unknown]
